FAERS Safety Report 4874209-7 (Version None)
Quarter: 2006Q1

REPORT INFORMATION
  Report Type: 
  Country: None (occurrence: None)
  Receive Date: 20060104
  Receipt Date: 20060104
  Transmission Date: 20060701
  Serious: Yes (Life-Threatening, Hospitalization)
  Sender: FDA-Public Use
  Company Number: None

PATIENT
  Age: 13 Year
  Sex: Female
  Weight: 57 kg

DRUGS (1)
  1. XANAX [Suspect]
     Dosage: 7 MG X 1
     Dates: start: 20050622

REACTIONS (5)
  - DYSARTHRIA [None]
  - FLUSHING [None]
  - GAIT DISTURBANCE [None]
  - MYDRIASIS [None]
  - OVERDOSE [None]
